FAERS Safety Report 15378416 (Version 1)
Quarter: 2018Q3

REPORT INFORMATION
  Report Type: Spontaneous
  Country: FR (occurrence: FR)
  Receive Date: 20180913
  Receipt Date: 20180913
  Transmission Date: 20181010
  Serious: Yes (Hospitalization, Other)
  Sender: FDA-Public Use
  Company Number: FR-BRISTOL-MYERS SQUIBB COMPANY-BMS-2018-084192

PATIENT
  Age: 89 Year
  Sex: Female
  Weight: 89 kg

DRUGS (14)
  1. ELIQUIS [Suspect]
     Active Substance: APIXABAN
     Indication: PRODUCT USED FOR UNKNOWN INDICATION
     Route: 065
  2. PANTOZOL [Concomitant]
     Active Substance: PANTOPRAZOLE SODIUM
     Indication: PRODUCT USED FOR UNKNOWN INDICATION
     Dosage: 40 MG, (DRUG INTERVAL DOSAGE UNIT NUMBER:1 DAY)
     Route: 048
  3. PIPERACILLIN [Concomitant]
     Active Substance: PIPERACILLIN
     Indication: PRODUCT USED FOR UNKNOWN INDICATION
     Dosage: 3 UNIT WAS UNKNOWN  (DRUG INTERVAL DOSAGE UNIT NUMBER:1 DAY)
     Route: 065
  4. TRAMOL                             /00020001/ [Concomitant]
     Indication: PRODUCT USED FOR UNKNOWN INDICATION
     Dosage: 100 MG, (DRUG INTERVAL DOSAGE UNIT NUMBER:1 DAY)
     Route: 065
  5. TORASEMIDE [Concomitant]
     Active Substance: TORSEMIDE
     Indication: PRODUCT USED FOR UNKNOWN INDICATION
     Dosage: 10 MG, (DRUG INTERVAL DOSAGE UNIT NUMBER:1 DAY)
     Route: 065
  6. SPIRONOLACTONE. [Concomitant]
     Active Substance: SPIRONOLACTONE
     Indication: PRODUCT USED FOR UNKNOWN INDICATION
     Dosage: 25 MG, (DRUG INTERVAL DOSAGE UNIT NUMBER:1 DAY)
     Route: 065
  7. ASPIRIN. [Suspect]
     Active Substance: ASPIRIN
     Indication: PRODUCT USED FOR UNKNOWN INDICATION
     Dosage: 1 DF, (DRUG INTERVAL DOSAGE UNIT NUMBER:1 DAY)
     Route: 048
  8. MOVICOL [Concomitant]
     Active Substance: POLYETHYLENE GLYCOL 3350\POTASSIUM CHLORIDE\SODIUM BICARBONATE\SODIUM CHLORIDE
     Indication: PRODUCT USED FOR UNKNOWN INDICATION
     Dosage: 2 (DRUG INTERVAL DOSAGE UNIT NUMBER:1 DAY)
     Route: 048
  9. RAMIPRIL. [Concomitant]
     Active Substance: RAMIPRIL
     Indication: PRODUCT USED FOR UNKNOWN INDICATION
     Dosage: 5 MG, (DRUG INTERVAL DOSAGE UNIT NUMBER:1 DAY)
     Route: 065
  10. BISOPROLOL [Concomitant]
     Active Substance: BISOPROLOL
     Indication: PRODUCT USED FOR UNKNOWN INDICATION
     Dosage: 2.5 MG, (DRUG INTERVAL DOSAGE UNIT NUMBER:1 DAY)
     Route: 048
  11. NOVALGIN (METAMIZOLE SODIUM) [Concomitant]
     Active Substance: METAMIZOLE SODIUM
     Indication: PRODUCT USED FOR UNKNOWN INDICATION
     Dosage: 30 GTT, (DRUG INTERVAL DOSAGE UNIT NUMBER:1 DAY)
     Route: 065
  12. PLAVIX [Suspect]
     Active Substance: CLOPIDOGREL BISULFATE
     Indication: PRODUCT USED FOR UNKNOWN INDICATION
     Dosage: 1 DF, (DRUG INTERVAL DOSAGE UNIT NUMBER:1 DAY)
     Route: 048
  13. DIPIPERON [Concomitant]
     Active Substance: PIPAMPERONE
     Indication: PRODUCT USED FOR UNKNOWN INDICATION
     Dosage: 20 MG, (DRUG INTERVAL DOSAGE UNIT NUMBER:1 DAY)
     Route: 065
  14. SIMVASTATIN. [Concomitant]
     Active Substance: SIMVASTATIN
     Indication: PRODUCT USED FOR UNKNOWN INDICATION
     Dosage: 20 MG, U(DRUG INTERVAL DOSAGE UNIT NUMBER:1 DAY)NK
     Route: 065

REACTIONS (5)
  - Atrial flutter [Unknown]
  - Dyspnoea [Unknown]
  - Hypotension [Unknown]
  - Pleural effusion [Unknown]
  - Cardiac failure [Unknown]

NARRATIVE: CASE EVENT DATE: 20170928
